FAERS Safety Report 6201227-9 (Version None)
Quarter: 2009Q2

REPORT INFORMATION
  Report Type: 
  Country: None (occurrence: None)
  Receive Date: 20090526
  Receipt Date: 20090519
  Transmission Date: 20091009
  Serious: Yes (Other)
  Sender: FDA-Public Use
  Company Number: FR-JNJFOC-20090505539

PATIENT
  Age: 45 Year
  Sex: Female

DRUGS (2)
  1. RISPERDAL [Suspect]
     Indication: HALLUCINATION
     Route: 048
  2. RISPERDAL CONSTA [Suspect]
     Indication: HALLUCINATION
     Route: 030

REACTIONS (1)
  - CYTOLYTIC HEPATITIS [None]
